FAERS Safety Report 18762455 (Version 1)
Quarter: 2021Q1

REPORT INFORMATION
  Report Type: Spontaneous
  Country: US (occurrence: US)
  Receive Date: 20210120
  Receipt Date: 20210120
  Transmission Date: 20210419
  Serious: No
  Sender: FDA-Public Use
  Company Number: US-BIOVITRUM-2021US0514

PATIENT
  Sex: Male
  Weight: 4 kg

DRUGS (2)
  1. MULTIVITAMINS WITH IRON TABLET [Concomitant]
  2. SYNAGIS [Suspect]
     Active Substance: PALIVIZUMAB
     Indication: ANTIVIRAL PROPHYLAXIS
     Route: 030
     Dates: start: 20201208

REACTIONS (1)
  - Weight decreased [Unknown]
